FAERS Safety Report 24648295 (Version 1)
Quarter: 2024Q4

REPORT INFORMATION
  Report Type: Report from Study
  Country: US (occurrence: US)
  Receive Date: 20241121
  Receipt Date: 20241121
  Transmission Date: 20250115
  Serious: Yes (Other)
  Sender: ALEXION PHARMACEUTICALS
  Company Number: US-AstraZeneca-CH-00747785A

PATIENT

DRUGS (4)
  1. CAPIVASERTIB [Suspect]
     Active Substance: CAPIVASERTIB
     Indication: Malignant neoplasm of unknown primary site
  2. CAPIVASERTIB [Suspect]
     Active Substance: CAPIVASERTIB
  3. CAPIVASERTIB [Suspect]
     Active Substance: CAPIVASERTIB
  4. CAPIVASERTIB [Suspect]
     Active Substance: CAPIVASERTIB

REACTIONS (10)
  - Blood oestrogen decreased [Unknown]
  - Cardiac failure congestive [Unknown]
  - Asthenia [Unknown]
  - Decreased appetite [Unknown]
  - Urinary tract infection [Unknown]
  - Atrial fibrillation [Unknown]
  - Balance disorder [Unknown]
  - Intervertebral disc protrusion [Unknown]
  - Platelet count decreased [Unknown]
  - Haemoglobin decreased [Unknown]
